FAERS Safety Report 5956656-5 (Version None)
Quarter: 2008Q4

REPORT INFORMATION
  Report Type: 
  Country: None (occurrence: None)
  Receive Date: 20081031
  Receipt Date: 20080730
  Transmission Date: 20090506
  Serious: No
  Sender: FDA-Public Use
  Company Number: 2008PV036321

PATIENT
  Age: 26 Year
  Sex: Female

DRUGS (4)
  1. SYMLIN [Suspect]
     Indication: TYPE 1 DIABETES MELLITUS
     Dosage: 120 MCG;TID;SC : 120 MCG;TID : 15 MCG;TID;SC
     Route: 058
     Dates: start: 20070701, end: 20070101
  2. SYMLIN [Suspect]
     Indication: TYPE 1 DIABETES MELLITUS
     Dosage: 120 MCG;TID;SC : 120 MCG;TID : 15 MCG;TID;SC
     Route: 058
     Dates: start: 20070101, end: 20080401
  3. SYMLIN [Suspect]
     Indication: TYPE 1 DIABETES MELLITUS
     Dosage: 120 MCG;TID;SC : 120 MCG;TID : 15 MCG;TID;SC
     Route: 058
     Dates: start: 20080728
  4. NOVOLOG [Concomitant]

REACTIONS (1)
  - NAUSEA [None]
